FAERS Safety Report 9185219 (Version 1)
Quarter: 2013Q1

REPORT INFORMATION
  Report Type: Spontaneous
  Country: US (occurrence: US)
  Receive Date: 20130325
  Receipt Date: 20130325
  Transmission Date: 20140127
  Serious: Yes (Other)
  Sender: FDA-Public Use
  Company Number: GXKR2010US13955

PATIENT
  Age: 33 Year
  Sex: Female

DRUGS (2)
  1. HYDROXYZINE [Suspect]
     Route: 048
  2. NEOMYCIN [Suspect]
     Route: 061

REACTIONS (10)
  - Dermatitis contact [Recovering/Resolving]
  - Parapsoriasis [Recovering/Resolving]
  - Eczema [Not Recovered/Not Resolved]
  - Blister [Recovering/Resolving]
  - Skin burning sensation [Recovering/Resolving]
  - Pruritus generalised [Recovering/Resolving]
  - Rash pruritic [Recovering/Resolving]
  - Rash papular [Recovering/Resolving]
  - Skin lesion [Recovering/Resolving]
  - Condition aggravated [Recovering/Resolving]
